FAERS Safety Report 6345455-0 (Version None)
Quarter: 2009Q3

REPORT INFORMATION
  Report Type: 
  Country: None (occurrence: None)
  Receive Date: 20090909
  Receipt Date: 20090831
  Transmission Date: 20100115
  Serious: Yes (Hospitalization)
  Sender: FDA-Public Use
  Company Number: FR-ASTRAZENECA-2009SE11257

PATIENT
  Age: 0 Day
  Sex: Male
  Weight: 3.2 kg

DRUGS (9)
  1. XYLOCAINE 2% WITH ADRENALINE [Suspect]
     Indication: LABOUR PAIN
     Route: 064
     Dates: start: 20090719, end: 20090719
  2. CHIROCAINE [Suspect]
     Indication: LABOUR PAIN
     Route: 064
     Dates: start: 20090719
  3. CHIROCAINE [Suspect]
     Route: 064
     Dates: start: 20090719
  4. CHIROCAINE [Suspect]
     Route: 064
     Dates: start: 20090720
  5. CHIROCAINE [Suspect]
     Route: 064
     Dates: start: 20090720
  6. SUFENTANIL CITRATE [Concomitant]
     Indication: LABOUR PAIN
     Route: 064
     Dates: start: 20090719
  7. SUFENTANIL CITRATE [Concomitant]
     Route: 064
     Dates: start: 20090719
  8. SUFENTANIL CITRATE [Concomitant]
     Route: 064
     Dates: start: 20090720
  9. SUFENTANIL CITRATE [Concomitant]
     Route: 064
     Dates: start: 20090720

REACTIONS (1)
  - HYPOTONIA NEONATAL [None]
